FAERS Safety Report 8187723-6 (Version None)
Quarter: 2012Q1

REPORT INFORMATION
  Report Type: 
  Country: None (occurrence: None)
  Receive Date: 20120306
  Receipt Date: 20120302
  Transmission Date: 20120608
  Serious: Yes (Death, Other)
  Sender: FDA-Public Use
  Company Number: CN-BRACCO-000259

PATIENT
  Age: 21 Year
  Sex: Male

DRUGS (3)
  1. IOPAMIDOL [Suspect]
     Indication: SPINAL MYELOGRAM
     Dosage: STRENGTH: 18.5 G(I)/50 ML/BOTTLE) AND WAS DILUTED WITH 20 ML OF NORMAL SALINE
     Route: 037
     Dates: start: 20111025, end: 20111025
  2. CEFTRIAXONE SODIUM [Concomitant]
     Indication: MENINGITIS
     Dates: start: 20111001
  3. IOPAMIDOL [Suspect]
     Indication: INTRACRANIAL HYPOTENSION
     Dosage: STRENGTH: 18.5 G(I)/50 ML/BOTTLE) AND WAS DILUTED WITH 20 ML OF NORMAL SALINE
     Route: 037
     Dates: start: 20111025, end: 20111025

REACTIONS (1)
  - ANAPHYLACTIC REACTION [None]
